FAERS Safety Report 13305192 (Version 1)
Quarter: 2017Q1

REPORT INFORMATION
  Report Type: Spontaneous
  Country: US (occurrence: US)
  Receive Date: 20170308
  Receipt Date: 20170308
  Transmission Date: 20170428
  Serious: No
  Sender: FDA-Public Use
  Company Number: US-PFIZER INC-2017092780

PATIENT
  Sex: Female

DRUGS (1)
  1. XELJANZ XR [Suspect]
     Active Substance: TOFACITINIB CITRATE
     Dosage: 11 MG, UNK
     Dates: start: 20161101

REACTIONS (7)
  - Musculoskeletal stiffness [Unknown]
  - Mean cell haemoglobin increased [Unknown]
  - Pain in extremity [Unknown]
  - Joint range of motion decreased [Unknown]
  - Arthralgia [Unknown]
  - Rhinitis allergic [Unknown]
  - Aspartate aminotransferase abnormal [Unknown]
